FAERS Safety Report 5971827-X (Version None)
Quarter: 2008Q4

REPORT INFORMATION
  Report Type: 
  Country: None (occurrence: None)
  Receive Date: 20081201
  Receipt Date: 20081124
  Transmission Date: 20090506
  Serious: Yes (Hospitalization)
  Sender: FDA-Public Use
  Company Number: US-ASTRAZENECA-2008UW26354

PATIENT
  Age: 79 Year
  Sex: Female
  Weight: 79.4 kg

DRUGS (5)
  1. TOPROL-XL [Suspect]
     Dosage: 100 MG
     Route: 048
  2. ZESTRIL [Concomitant]
  3. NEXIUM [Concomitant]
  4. PERCOCET [Concomitant]
  5. VALLIUM [Concomitant]

REACTIONS (4)
  - DYSPHAGIA [None]
  - EATING DISORDER [None]
  - LYMPHOMA [None]
  - WEIGHT DECREASED [None]
